FAERS Safety Report 7751063-7 (Version None)
Quarter: 2011Q3

REPORT INFORMATION
  Report Type: 
  Country: None (occurrence: None)
  Receive Date: 20110914
  Receipt Date: 20110518
  Transmission Date: 20111222
  Serious: No
  Sender: FDA-Public Use
  Company Number: US-MYLANLABS-2011S1010469

PATIENT
  Age: 64 Year
  Sex: Female

DRUGS (6)
  1. CARVEDILOL GENERIC [Concomitant]
  2. LISINOPRIL [Concomitant]
  3. EPOGEN [Concomitant]
  4. HYDRALAZINE HCL [Concomitant]
  5. SIMVASTATIN GENERICS [Concomitant]
  6. SPIRONOLACTONE [Suspect]
     Indication: CARDIAC FAILURE CHRONIC
     Route: 048
     Dates: start: 20110511

REACTIONS (3)
  - SINUS CONGESTION [None]
  - REACTION TO DRUG EXCIPIENTS [None]
  - SNEEZING [None]
